FAERS Safety Report 21958585 (Version 2)
Quarter: 2023Q4

REPORT INFORMATION
  Report Type: Spontaneous
  Country: US (occurrence: US)
  Receive Date: 20230206
  Receipt Date: 20231228
  Transmission Date: 20240110
  Serious: No
  Sender: FDA-Public Use
  Company Number: US-SA-SAC20230202001449

PATIENT
  Age: 10 Year
  Sex: Male

DRUGS (3)
  1. DUPIXENT [Suspect]
     Active Substance: DUPILUMAB
     Indication: Dermatitis atopic
     Dosage: 200 MG, QOW
     Route: 058
     Dates: start: 202210
  2. DUPIXENT [Suspect]
     Active Substance: DUPILUMAB
     Indication: Dermatitis
  3. DUPIXENT [Suspect]
     Active Substance: DUPILUMAB
     Indication: Seborrhoeic dermatitis

REACTIONS (11)
  - Mental status changes [Unknown]
  - General physical condition abnormal [Unknown]
  - Pyrexia [Unknown]
  - Headache [Unknown]
  - Fatigue [Unknown]
  - Skin disorder [Unknown]
  - Condition aggravated [Unknown]
  - Infection [Recovered/Resolved]
  - Injection site pain [Unknown]
  - Product use in unapproved indication [Unknown]
  - Drug ineffective [Unknown]

NARRATIVE: CASE EVENT DATE: 20221001
